FAERS Safety Report 22631012 (Version 1)
Quarter: 2023Q2

REPORT INFORMATION
  Report Type: Report from Study
  Country: CA (occurrence: CA)
  Receive Date: 20230622
  Receipt Date: 20230622
  Transmission Date: 20230721
  Serious: Yes (Other)
  Sender: FDA-Public Use
  Company Number: CA-JNJFOC-20220445017

PATIENT
  Age: 26 Year
  Sex: Female
  Weight: 58 kg

DRUGS (5)
  1. REMICADE [Suspect]
     Active Substance: INFLIXIMAB
     Indication: Crohn^s disease
     Dosage: INFUSION ON 14-JUL-2022
     Route: 041
     Dates: start: 20190111
  2. ALBUTEROL [Suspect]
     Active Substance: ALBUTEROL
     Indication: Product used for unknown indication
     Dosage: THERAPY START DATE: AUG-2022 OR SEP-2022
     Route: 065
     Dates: start: 2022, end: 202212
  3. BUDESONIDE [Suspect]
     Active Substance: BUDESONIDE
     Indication: Product used for unknown indication
     Dosage: THERAPY START DATE: AUG-2022 OR SEP-2022
     Route: 065
     Dates: start: 2022, end: 202212
  4. CEPHALEXIN [Suspect]
     Active Substance: CEPHALEXIN
     Indication: Product used for unknown indication
     Route: 065
     Dates: start: 202207, end: 202207
  5. PITOCIN [Concomitant]
     Active Substance: OXYTOCIN
     Indication: Labour induction
     Route: 008
     Dates: start: 2022

REACTIONS (6)
  - Pneumonia [Not Recovered/Not Resolved]
  - Immunosuppression [Unknown]
  - Nasopharyngitis [Unknown]
  - Influenza [Unknown]
  - Exposure during pregnancy [Recovered/Resolved]
  - Off label use [Unknown]

NARRATIVE: CASE EVENT DATE: 20190111
